FAERS Safety Report 25990270 (Version 1)
Quarter: 2025Q4

REPORT INFORMATION
  Report Type: Spontaneous
  Country: US (occurrence: None)
  Receive Date: 20251103
  Receipt Date: 20251103
  Transmission Date: 20260118
  Serious: Yes (Hospitalization)
  Sender: FDA-CTU
  Company Number: None

PATIENT
  Sex: Female

DRUGS (11)
  1. REVLIMID [Suspect]
     Active Substance: LENALIDOMIDE
     Dosage: ?TAKE ONE CAPSULE BY MOUTH EVERY 3 DAYS
     Route: 048
     Dates: start: 20250725
  2. ACYCLOVIR [Concomitant]
     Active Substance: ACYCLOVIR
  3. AMLODIPINE [Concomitant]
     Active Substance: AMLODIPINE BESYLATE
  4. AZELASTINE SPR0.1%i [Concomitant]
  5. BUPROPION [Concomitant]
     Active Substance: BUPROPION
  6. CITALOPRAM TAB 40MG [Concomitant]
  7. CLARITIN CAP 10MG [Concomitant]
  8. COLACE CAP 100MG [Concomitant]
  9. DARZALEX INJ FASPRO [Concomitant]
  10. DEXAMETHASONE [Concomitant]
     Active Substance: DEXAMETHASONE
  11. DICLOFENAC TAB 75MG DR [Concomitant]

REACTIONS (2)
  - Road traffic accident [None]
  - Full blood count decreased [None]
